FAERS Safety Report 9496313 (Version 2)
Quarter: 2013Q3

REPORT INFORMATION
  Report Type: Spontaneous
  Country: US (occurrence: US)
  Receive Date: 20130904
  Receipt Date: 20130910
  Transmission Date: 20140515
  Serious: Yes (Hospitalization)
  Sender: FDA-Public Use
  Company Number: US-GENZYME-FABR-1003553

PATIENT
  Age: 75 Year
  Sex: Female
  Weight: 56 kg

DRUGS (1)
  1. FABRAZYME [Suspect]
     Indication: FABRY^S DISEASE
     Dosage: 1.07 MG/KG, Q2W
     Route: 042
     Dates: start: 20031208, end: 20130906

REACTIONS (1)
  - Angina unstable [Not Recovered/Not Resolved]
